FAERS Safety Report 20254259 (Version 2)
Quarter: 2022Q1

REPORT INFORMATION
  Report Type: Report from Study
  Country: IT (occurrence: None)
  Receive Date: 20211230
  Receipt Date: 20220217
  Transmission Date: 20220423
  Serious: Yes (Other)
  Sender: FDA-Public Use
  Company Number: IT-ROCHE-2987652

PATIENT
  Age: 70 Year
  Sex: Female
  Weight: 71 kg

DRUGS (38)
  1. RITUXIMAB [Suspect]
     Active Substance: RITUXIMAB
     Indication: Chronic lymphocytic leukaemia
     Route: 041
     Dates: start: 20210527
  2. BENDAMUSTINE [Suspect]
     Active Substance: BENDAMUSTINE
     Indication: Chronic lymphocytic leukaemia
     Route: 042
     Dates: start: 20210527
  3. FOLIC ACID [Concomitant]
     Active Substance: FOLIC ACID
     Indication: Folate deficiency
     Dosage: YES
     Route: 048
     Dates: start: 20210927
  4. PANTOPRAZOLE [Concomitant]
     Active Substance: PANTOPRAZOLE
     Indication: Helicobacter infection
     Dosage: GIVEN FOR PROPHYLAXIS IS YES ;ONGOING: YES
     Route: 048
     Dates: start: 20210527
  5. EPOETIN ALFA [Concomitant]
     Active Substance: ERYTHROPOIETIN
     Dosage: YES
     Route: 058
     Dates: start: 20210604
  6. ACYCLOVIR [Concomitant]
     Active Substance: ACYCLOVIR
     Dosage: GIVEN FOR PROPHYLAXIS IS YES ;ONGOING: YES
     Route: 048
     Dates: start: 20210527
  7. SULFAMETHOXAZOLE\TRIMETHOPRIM [Concomitant]
     Active Substance: SULFAMETHOXAZOLE\TRIMETHOPRIM
     Indication: Antifungal prophylaxis
     Dosage: GIVEN FOR PROPHYLAXIS IS YES ;ONGOING: YES
     Route: 048
     Dates: start: 20210527
  8. LAMIVUDINE [Concomitant]
     Active Substance: LAMIVUDINE
     Indication: Antiviral prophylaxis
     Dosage: GIVEN FOR PROPHYLAXIS IS YES ;ONGOING: YES
     Route: 048
     Dates: start: 20210331
  9. ASPIRIN [Concomitant]
     Active Substance: ASPIRIN
     Indication: Cardiovascular event prophylaxis
     Dosage: YES
     Route: 048
  10. NYSTATIN [Concomitant]
     Active Substance: NYSTATIN
     Dosage: DRUG DOSE FIRST ADMINISTERED IS 1 TBSP?GIVEN FOR PROPHYLAXIS IS YES ;ONGOING: YES
     Route: 048
     Dates: start: 20210527
  11. CHLORHEXIDINE [Concomitant]
     Active Substance: CHLORHEXIDINE
     Dosage: DRUG DOSE FIRST ADMINISTERED IS 1 TBSP?GIVEN FOR PROPHYLAXIS IS YES ;ONGOING: YES
     Route: 048
     Dates: start: 20210527
  12. ONDANSETRON [Concomitant]
     Active Substance: ONDANSETRON
     Indication: Prophylaxis of nausea and vomiting
     Dosage: GIVEN FOR PROPHYLAXIS IS YES ;ONGOING: YES
     Route: 048
     Dates: start: 20210527
  13. LOPERAMIDE [Concomitant]
     Active Substance: LOPERAMIDE
     Dosage: YES
     Route: 048
     Dates: start: 20210527
  14. ACETAMINOPHEN [Concomitant]
     Active Substance: ACETAMINOPHEN
     Dosage: YES
     Route: 048
     Dates: start: 20210527
  15. MOVICOL [Concomitant]
     Active Substance: POLYETHYLENE GLYCOL 3350\POTASSIUM CHLORIDE\SODIUM BICARBONATE\SODIUM CHLORIDE
     Dosage: DRUG DOSE FIRST ADMINISTERED IS 1 OTHER ;ONGOING: YES
     Route: 048
     Dates: start: 20210527
  16. GLYCERIN [Concomitant]
     Active Substance: GLYCERIN
     Dosage: DRUG DOSE FIRST ADMINISTERED IS 1 OTHER ;ONGOING: YES
     Route: 054
     Dates: start: 20210527
  17. FILGRASTIM [Concomitant]
     Active Substance: FILGRASTIM
     Indication: Neutropenia
     Dosage: DRUG DOSE FIRST ADMINISTERED IS 30 OTHER ;ONGOING: YES
     Route: 058
     Dates: start: 20210610
  18. SUCROSOMIAL IRON [Concomitant]
     Dosage: DRUG DOSE FIRST ADMINISTERED IS 1 OTHER ;ONGOING: YES
     Route: 048
     Dates: start: 20210927
  19. ENOXAPARIN SODIUM [Concomitant]
     Active Substance: ENOXAPARIN SODIUM
     Route: 058
     Dates: start: 20210528, end: 20211006
  20. ENOXAPARIN SODIUM [Concomitant]
     Active Substance: ENOXAPARIN SODIUM
     Dates: start: 20211007, end: 20211025
  21. ALLOPURINOL [Concomitant]
     Active Substance: ALLOPURINOL
     Route: 048
     Dates: start: 20210325, end: 20210618
  22. METHYLPREDNISOLONE [Concomitant]
     Active Substance: METHYLPREDNISOLONE
     Route: 042
     Dates: start: 20210624, end: 20210624
  23. METHYLPREDNISOLONE [Concomitant]
     Active Substance: METHYLPREDNISOLONE
     Dates: start: 20210527, end: 20210527
  24. METHYLPREDNISOLONE [Concomitant]
     Active Substance: METHYLPREDNISOLONE
     Dates: start: 20210722, end: 20210722
  25. METHYLPREDNISOLONE [Concomitant]
     Active Substance: METHYLPREDNISOLONE
     Dates: start: 20211028, end: 20211028
  26. METHYLPREDNISOLONE [Concomitant]
     Active Substance: METHYLPREDNISOLONE
     Dates: start: 20210927, end: 20210927
  27. METHYLPREDNISOLONE [Concomitant]
     Active Substance: METHYLPREDNISOLONE
     Dates: start: 20210824, end: 20210824
  28. CHLORPHENIRAMINE MALEATE [Concomitant]
     Active Substance: CHLORPHENIRAMINE MALEATE
     Route: 042
     Dates: start: 20210927, end: 20210927
  29. CHLORPHENIRAMINE MALEATE [Concomitant]
     Active Substance: CHLORPHENIRAMINE MALEATE
     Dates: start: 20210722, end: 20210722
  30. CHLORPHENIRAMINE MALEATE [Concomitant]
     Active Substance: CHLORPHENIRAMINE MALEATE
     Dates: start: 20210624, end: 20210624
  31. CHLORPHENIRAMINE MALEATE [Concomitant]
     Active Substance: CHLORPHENIRAMINE MALEATE
     Dates: start: 20210824, end: 20210824
  32. CHLORPHENIRAMINE MALEATE [Concomitant]
     Active Substance: CHLORPHENIRAMINE MALEATE
     Dates: start: 20210527, end: 20210527
  33. CHLORPHENIRAMINE MALEATE [Concomitant]
     Active Substance: CHLORPHENIRAMINE MALEATE
     Dates: start: 20211028, end: 20211028
  34. ACETAMINOPHEN [Concomitant]
     Active Substance: ACETAMINOPHEN
     Route: 048
     Dates: start: 20211028, end: 20211028
  35. ACETAMINOPHEN [Concomitant]
     Active Substance: ACETAMINOPHEN
     Dates: start: 20210527, end: 20210527
  36. ACETAMINOPHEN [Concomitant]
     Active Substance: ACETAMINOPHEN
     Dates: start: 20210722, end: 20210722
  37. ACETAMINOPHEN [Concomitant]
     Active Substance: ACETAMINOPHEN
     Dates: start: 20210927, end: 20210927
  38. ACETAMINOPHEN [Concomitant]
     Active Substance: ACETAMINOPHEN
     Dates: start: 20210624, end: 20210624

REACTIONS (1)
  - COVID-19 [Recovered/Resolved]

NARRATIVE: CASE EVENT DATE: 20211201
